FAERS Safety Report 8739181 (Version 3)
Quarter: 2012Q4

REPORT INFORMATION
  Report Type: 
  Country: DE (occurrence: DE)
  Receive Date: 20120823
  Receipt Date: 20121010
  Transmission Date: 20130627
  Serious: Yes (Other)
  Sender: FDA-Public Use
  Company Number: DE-AMGEN-DEUSP2012052723

PATIENT
  Age: 65 Year
  Sex: Male
  Weight: 77 kg

DRUGS (3)
  1. PROLIA [Suspect]
     Indication: PROSTATE CANCER METASTATIC
     Dosage: 60 mg, one time dose
     Dates: start: 20120813
  2. PROLIA [Suspect]
     Indication: METASTASES TO BONE
  3. ZYTIGA [Concomitant]
     Indication: PROSTATE CANCER METASTATIC
     Dosage: 250 mg, UNK
     Route: 048

REACTIONS (4)
  - Wrong drug administered [Recovered/Resolved]
  - Influenza like illness [Recovered/Resolved]
  - Myalgia [Recovered/Resolved]
  - Sciatica [Recovered/Resolved]
